FAERS Safety Report 8391498-5 (Version None)
Quarter: 2012Q2

REPORT INFORMATION
  Report Type: 
  Country: None (occurrence: None)
  Receive Date: 20120529
  Receipt Date: 20120516
  Transmission Date: 20120825
  Serious: Yes (Life-Threatening, Hospitalization)
  Sender: FDA-Public Use
  Company Number: CH-VERTEX PHARMACEUTICALS INC.-000000000000000720

PATIENT
  Age: 51 Year
  Sex: Male

DRUGS (10)
  1. TORSEMIDE [Concomitant]
     Indication: PRODUCT USED FOR UNKNOWN INDICATION
     Dosage: DOSAGE FORM: UNSPECIFIED
     Route: 048
     Dates: start: 20120412
  2. PANTOPRAZOLE [Concomitant]
     Route: 048
  3. EUTHYROX [Concomitant]
     Route: 048
     Dates: start: 19830101
  4. VALSARTAN [Concomitant]
     Route: 048
     Dates: start: 20120412
  5. INSPRA [Concomitant]
     Route: 048
     Dates: start: 20120412
  6. COPEGUS [Concomitant]
     Indication: HEPATITIS C
     Route: 048
     Dates: start: 20120413, end: 20120423
  7. TRIATEC COMP [Concomitant]
     Route: 048
     Dates: start: 20120412
  8. INCIVO [Suspect]
     Indication: HEPATITIS C
     Dosage: DOSAGE FORM: TABLET
     Route: 048
     Dates: start: 20120413, end: 20120423
  9. NOVORAPID [Concomitant]
     Indication: PRODUCT USED FOR UNKNOWN INDICATION
     Dosage: DOSAGE FORM: UNSPECIFIED
     Route: 058
  10. PEGASYS [Concomitant]
     Indication: HEPATITIS C
     Dosage: DOSAGE FORM: INJECTION
     Route: 058
     Dates: start: 20120413, end: 20120423

REACTIONS (12)
  - SEPSIS [None]
  - ANURIA [None]
  - VOMITING [None]
  - DIARRHOEA [None]
  - PYREXIA [None]
  - NAUSEA [None]
  - INCORRECT DOSE ADMINISTERED [None]
  - METABOLIC ACIDOSIS [None]
  - RENAL FAILURE CHRONIC [None]
  - HYPONATRAEMIA [None]
  - HYPERKALAEMIA [None]
  - CHILLS [None]
